FAERS Safety Report 5288508-0 (Version None)
Quarter: 2007Q2

REPORT INFORMATION
  Report Type: 
  Country: None (occurrence: None)
  Receive Date: 20070405
  Receipt Date: 20070402
  Transmission Date: 20071010
  Serious: Yes (Death, Hospitalization)
  Sender: FDA-Public Use
  Company Number: HQWYE400103APR07

PATIENT

DRUGS (4)
  1. GEMTUZUMAB OZOGAMICIN [Suspect]
     Dosage: UNKNOWN
     Route: 065
  2. CYTARABINE [Suspect]
     Dosage: UNKNOWN
     Route: 065
  3. ETOPOSIDE [Suspect]
     Dosage: UNKNOWN
     Route: 065
  4. IDARUBICIN HCL [Suspect]
     Dosage: UNKNOWN
     Route: 065

REACTIONS (7)
  - ANURIA [None]
  - BLOOD CULTURE POSITIVE [None]
  - CIRCULATORY COLLAPSE [None]
  - DIARRHOEA [None]
  - HYPOTENSION [None]
  - PYREXIA [None]
  - VOMITING [None]
